FAERS Safety Report 5911338-0 (Version None)
Quarter: 2008Q4

REPORT INFORMATION
  Report Type: 
  Country: None (occurrence: None)
  Receive Date: 20081007
  Receipt Date: 20080924
  Transmission Date: 20090506
  Serious: Yes (Hospitalization, Other)
  Sender: FDA-Public Use
  Company Number: US-ELI_LILLY_AND_COMPANY-US200809005954

PATIENT
  Sex: Female

DRUGS (3)
  1. CYMBALTA [Suspect]
     Indication: MAJOR DEPRESSION
     Dosage: 60 MG, 2/D
     Dates: start: 20080301
  2. ESTRADIOL [Concomitant]
     Dosage: 1 MG, UNK
     Dates: start: 20030101
  3. VYTORIN [Concomitant]
     Dosage: 1 D/F, UNK
     Dates: start: 20050101

REACTIONS (4)
  - HAEMATOCRIT DECREASED [None]
  - HEART RATE INCREASED [None]
  - POST PROCEDURAL HAEMORRHAGE [None]
  - SURGERY [None]
